FAERS Safety Report 6045266-X (Version None)
Quarter: 2009Q1

REPORT INFORMATION
  Report Type: 
  Country: None (occurrence: None)
  Receive Date: 20090121
  Receipt Date: 20090109
  Transmission Date: 20090719
  Serious: Yes (Hospitalization, Other)
  Sender: FDA-Public Use
  Company Number: PHHY2009DE01057

PATIENT
  Age: 70 Year
  Sex: Male
  Weight: 91.5 kg

DRUGS (15)
  1. DIOVAN [Suspect]
     Indication: HYPERTENSION
     Dosage: 160 MG, QD
     Route: 048
  2. EBRANTIL [Concomitant]
     Indication: HYPERTENSION
     Dosage: 60 MG, 2 IN 1 DAY
     Route: 048
  3. EINSALPHA [Suspect]
     Indication: HYPERPARATHYROIDISM
     Dosage: 0.25 MICROGRAM DAILY
     Route: 048
     Dates: start: 20080520
  4. LOCHOL [Suspect]
     Indication: HYPERCHOLESTEROLAEMIA
     Dosage: 20 MG DAILY
     Route: 048
  5. PANTOZOL [Suspect]
     Indication: HELICOBACTER GASTRITIS
     Dosage: 40 MG, 2 IN ONE DAY
     Route: 048
  6. PLAVIX [Suspect]
     Indication: PROPHYLAXIS
     Dosage: 75 MG IN ONE DAY
     Route: 048
     Dates: start: 20060401, end: 20080720
  7. TOREM [Suspect]
     Indication: HYPERTENSION
     Dosage: 20 MG, 3 IN ONE DAY
     Route: 048
  8. XIPAMIDE [Suspect]
     Indication: HYPERTENSION
     Dosage: 20 MG, QID
     Route: 048
     Dates: start: 20060625
  9. ACETOLYT [Suspect]
     Indication: ACIDOSIS
     Dosage: 2.5 G DAILY
     Route: 048
     Dates: end: 20080720
  10. ALLOPURINOL [Suspect]
     Indication: HYPERURICAEMIA
     Dosage: 50 MG, QD
     Route: 048
  11. ACETYLSALICYLIC ACID SRT [Suspect]
     Indication: PROPHYLAXIS
     Dosage: 100 MG, ONE IN ONE DAY
     Route: 048
     Dates: start: 20000101
  12. CARVEDILOL [Suspect]
     Indication: HYPERTENSION
     Dosage: 12.5 MG DAILY
     Route: 048
  13. DIGITOXIN TAB [Suspect]
     Indication: CARDIAC FAILURE
     Dosage: 0.07 MG, 1 IN ONE DAY
     Route: 048
     Dates: start: 20080625, end: 20080720
  14. MOXONIDINE [Concomitant]
     Indication: HYPERTENSION
     Dosage: 0.2 MG, 3 IN ONE DAY
     Route: 048
  15. NEORECORMON ^ROCHE^ [Concomitant]
     Indication: ANAEMIA
     Dosage: 4000 IU, 2 IN ONE MONTH
     Route: 058

REACTIONS (6)
  - ANAEMIA [None]
  - CARDIOACTIVE DRUG LEVEL INCREASED [None]
  - GENERAL PHYSICAL HEALTH DETERIORATION [None]
  - MALAISE [None]
  - NAUSEA [None]
  - RENAL DISORDER [None]
